FAERS Safety Report 5431786-5 (Version None)
Quarter: 2007Q3

REPORT INFORMATION
  Report Type: 
  Country: None (occurrence: None)
  Receive Date: 20070830
  Receipt Date: 20070815
  Transmission Date: 20080115
  Serious: Yes (Disabling)
  Sender: FDA-Public Use
  Company Number: US-BAUSCH-2006BL005453

PATIENT
  Age: 43 Year
  Sex: Female

DRUGS (10)
  1. LOTEMAX [Suspect]
     Indication: EYE INFLAMMATION
     Route: 047
     Dates: start: 20060718, end: 20060725
  2. LOTEMAX [Suspect]
     Indication: CORNEAL INFILTRATES
     Route: 047
     Dates: start: 20060718, end: 20060725
  3. LOTEMAX [Suspect]
     Indication: KERATITIS
     Route: 047
     Dates: start: 20060718, end: 20060725
  4. LOTEMAX [Suspect]
     Route: 047
     Dates: start: 20060902, end: 20060903
  5. LOTEMAX [Suspect]
     Route: 047
     Dates: start: 20060902, end: 20060903
  6. LOTEMAX [Suspect]
     Route: 047
     Dates: start: 20060902, end: 20060903
  7. LOTEMAX [Suspect]
     Route: 047
     Dates: start: 20060726
  8. LOTEMAX [Suspect]
     Route: 047
     Dates: start: 20060726
  9. LOTEMAX [Suspect]
     Route: 047
     Dates: start: 20060726
  10. OPTIVAR [Concomitant]

REACTIONS (15)
  - ANXIETY [None]
  - CAUSTIC INJURY [None]
  - CHEMICAL BURNS OF EYE [None]
  - CONJUNCTIVITIS ALLERGIC [None]
  - CONTACT LENS INTOLERANCE [None]
  - CORNEAL EPITHELIUM DEFECT [None]
  - CORNEAL SCAR [None]
  - DEPRESSION [None]
  - GIANT PAPILLARY CONJUNCTIVITIS [None]
  - IMPAIRED DRIVING ABILITY [None]
  - IMPAIRED WORK ABILITY [None]
  - KERATITIS [None]
  - KERATOCONJUNCTIVITIS SICCA [None]
  - PHOTOPHOBIA [None]
  - VISUAL ACUITY REDUCED [None]
